FAERS Safety Report 21908199 (Version 3)
Quarter: 2023Q1

REPORT INFORMATION
  Report Type: Spontaneous
  Country: UY (occurrence: UY)
  Receive Date: 20230125
  Receipt Date: 20230217
  Transmission Date: 20230418
  Serious: No
  Sender: FDA-Public Use
  Company Number: UY-PFIZER INC-PV202300009326

PATIENT
  Age: 2 Year
  Sex: Male

DRUGS (1)
  1. GENOTROPIN [Suspect]
     Active Substance: SOMATROPIN
     Indication: Growth hormone deficiency
     Dosage: 0.1 TO 0.5 MG, 7 TIMES PER WEEK
     Dates: start: 20221203

REACTIONS (2)
  - Device malfunction [Unknown]
  - Drug dose omission by device [Unknown]
